FAERS Safety Report 24722867 (Version 1)
Quarter: 2024Q4

REPORT INFORMATION
  Report Type: Spontaneous
  Country: US (occurrence: US)
  Receive Date: 20241211
  Receipt Date: 20241211
  Transmission Date: 20250114
  Serious: No
  Sender: APOTEX
  Company Number: US-APOTEX-2024AP018404

PATIENT

DRUGS (2)
  1. MEMANTINE [Suspect]
     Active Substance: MEMANTINE
     Indication: Catatonia
     Dosage: UNK
     Route: 065
  2. CLOZAPINE [Concomitant]
     Active Substance: CLOZAPINE
     Indication: Catatonia
     Dosage: UNK
     Route: 065

REACTIONS (1)
  - Constipation [Unknown]
